FAERS Safety Report 9348923 (Version 1)
Quarter: 2013Q2

REPORT INFORMATION
  Report Type: Spontaneous
  Country: BS (occurrence: BS)
  Receive Date: 20130614
  Receipt Date: 20130614
  Transmission Date: 20140414
  Serious: Yes (Other)
  Sender: FDA-Public Use
  Company Number: BS-SANOFI-AVENTIS-2013SA059121

PATIENT
  Age: 54 Year
  Sex: Male

DRUGS (4)
  1. BARALGIN [Suspect]
     Indication: PAIN
     Route: 048
  2. BARALGIN [Suspect]
     Indication: PAIN
     Route: 048
     Dates: start: 20130530
  3. PLAVIX [Suspect]
     Indication: VASCULAR GRAFT
     Route: 048
  4. ASPIRIN [Suspect]
     Indication: VASCULAR GRAFT
     Route: 048

REACTIONS (2)
  - Nephrolithiasis [Recovered/Resolved]
  - Gingival bleeding [Recovered/Resolved]
